FAERS Safety Report 10986347 (Version 1)
Quarter: 2015Q2

REPORT INFORMATION
  Report Type: Spontaneous
  Country: NO (occurrence: None)
  Receive Date: 20150402
  Receipt Date: 20150402
  Transmission Date: 20150821
  Serious: Yes (Other)
  Sender: FDA-Public Use
  Company Number: 201503166

PATIENT
  Age: 64 Year
  Sex: Male

DRUGS (1)
  1. XIAPEX (CLOSTRIDIAL COLLAGENASE) [Suspect]
     Active Substance: COLLAGENASE CLOSTRIDIUM HISTOLYTICUM
     Indication: DUPUYTREN^S CONTRACTURE
     Dosage: INTRALESIONAL
     Dates: start: 20150119, end: 20150119

REACTIONS (3)
  - Tendon sheath disorder [None]
  - Laceration [None]
  - Tendon injury [None]

NARRATIVE: CASE EVENT DATE: 201501
